FAERS Safety Report 4665325-3 (Version None)
Quarter: 2005Q2

REPORT INFORMATION
  Report Type: 
  Country: None (occurrence: None)
  Receive Date: 20050517
  Receipt Date: 20050131
  Transmission Date: 20051028
  Serious: No
  Sender: FDA-Public Use
  Company Number: S05-USA-00473-01

PATIENT
  Age: 79 Year
  Sex: Female

DRUGS (3)
  1. NAMENDA [Suspect]
     Indication: DEMENTIA ALZHEIMER'S TYPE
     Dosage: 5 MG QD PO
     Route: 048
     Dates: start: 20050130
  2. REMINYL [Concomitant]
  3. ANTI-HYPERTENSIVES [Concomitant]

REACTIONS (1)
  - URINARY INCONTINENCE [None]
